FAERS Safety Report 9393245 (Version 2)
Quarter: 2013Q4

REPORT INFORMATION
  Report Type: Spontaneous
  Country: GB (occurrence: GB)
  Receive Date: 20130710
  Receipt Date: 20131111
  Transmission Date: 20140711
  Serious: Yes (Other)
  Sender: FDA-Public Use
  Company Number: GB-MYLANLABS-2013S1014326

PATIENT
  Age: 86 Year
  Sex: Male
  Weight: 82.5 kg

DRUGS (9)
  1. DONEPEZIL [Suspect]
     Indication: DEMENTIA
     Route: 048
     Dates: start: 20130603, end: 20130609
  2. DONEPEZIL [Suspect]
     Indication: DEMENTIA
  3. ASPIRIN [Concomitant]
     Indication: PRODUCT USED FOR UNKNOWN INDICATION
     Route: 048
  4. DOSULEPIN [Concomitant]
     Indication: PRODUCT USED FOR UNKNOWN INDICATION
     Route: 048
  5. MST CONTINUS [Concomitant]
     Indication: PRODUCT USED FOR UNKNOWN INDICATION
  6. NAPROSYN [Concomitant]
     Indication: PRODUCT USED FOR UNKNOWN INDICATION
     Route: 048
  7. SIMVASTATIN [Concomitant]
     Indication: PRODUCT USED FOR UNKNOWN INDICATION
     Route: 048
  8. SODIUM VALPROATE [Concomitant]
     Indication: PRODUCT USED FOR UNKNOWN INDICATION
     Route: 048
  9. THYROXINE [Concomitant]
     Indication: PRODUCT USED FOR UNKNOWN INDICATION
     Route: 048

REACTIONS (2)
  - Hallucination [Recovered/Resolved]
  - Nightmare [Recovered/Resolved]
